FAERS Safety Report 9011891 (Version 3)
Quarter: 2013Q1

REPORT INFORMATION
  Report Type: Spontaneous
  Country: US (occurrence: US)
  Receive Date: 20130114
  Receipt Date: 20130318
  Transmission Date: 20140127
  Serious: Yes (Death)
  Sender: FDA-Public Use
  Company Number: US-BIOGENIDEC-2013BI001336

PATIENT
  Sex: Female

DRUGS (24)
  1. TYSABRI [Suspect]
     Indication: MULTIPLE SCLEROSIS
     Route: 042
     Dates: start: 20070102, end: 20120503
  2. METOPROLOL [Concomitant]
  3. FLEXERIL [Concomitant]
  4. PRAVACHOL [Concomitant]
  5. KEPPRA [Concomitant]
  6. NEXIUM [Concomitant]
  7. SYNTHROID [Concomitant]
  8. AMITRIPTYLINE [Concomitant]
  9. MECLIZINE [Concomitant]
  10. CARBAMAZEPINE [Concomitant]
  11. IMITREX [Concomitant]
  12. ASA [Concomitant]
  13. VITAMIN A [Concomitant]
  14. VITAMIN D [Concomitant]
  15. VITAMIN E [Concomitant]
  16. CALCIUM CITRATE [Concomitant]
  17. OMEGA COMPLEX [Concomitant]
  18. MULTIVITAMIN [Concomitant]
  19. GARLIC [Concomitant]
  20. OMEPRAZOLE [Concomitant]
  21. BACLOFEN [Concomitant]
  22. TYLENOL [Concomitant]
  23. OXYCODONE [Concomitant]
  24. PREDNISONE TAPER [Concomitant]

REACTIONS (3)
  - Arthroscopy [Unknown]
  - Osteopenia [Unknown]
  - Multiple sclerosis [Fatal]
